FAERS Safety Report 5863490-3 (Version None)
Quarter: 2008Q3

REPORT INFORMATION
  Report Type: 
  Country: None (occurrence: None)
  Receive Date: 20080828
  Receipt Date: 20080821
  Transmission Date: 20090109
  Serious: Yes (Hospitalization)
  Sender: FDA-Public Use
  Company Number: US-PFIZER INC-2006144021

PATIENT
  Sex: Male
  Weight: 81.5 kg

DRUGS (10)
  1. FELDENE [Suspect]
     Indication: OSTEOARTHRITIS
     Route: 048
     Dates: start: 19900101
  2. SU-011,248 [Suspect]
     Indication: RENAL CELL CARCINOMA
     Route: 048
  3. WARFARIN SODIUM [Suspect]
     Indication: AORTIC VALVE REPLACEMENT
     Route: 048
  4. ATENOLOL [Concomitant]
     Indication: AORTIC VALVE REPLACEMENT
     Route: 048
     Dates: start: 20030101
  5. TOLTERODINE TARTRATE [Concomitant]
     Indication: HYPERTONIC BLADDER
     Route: 048
     Dates: start: 20051101
  6. TAMSULOSIN HCL [Concomitant]
     Indication: HYPERTONIC BLADDER
     Route: 048
     Dates: start: 20041101
  7. MAALOX [Concomitant]
     Indication: DYSPEPSIA
     Route: 048
     Dates: start: 20051101
  8. LORTAB [Concomitant]
     Indication: PAIN
     Route: 048
     Dates: start: 20051211
  9. LEUPROLIDE ACETATE [Concomitant]
     Indication: PROSTATE CANCER
     Route: 058
     Dates: start: 20051227
  10. TERAZOSIN HCL [Concomitant]
     Indication: HYPERTONIC BLADDER
     Route: 048
     Dates: start: 20060628

REACTIONS (1)
  - ANAL FISSURE [None]
